FAERS Safety Report 16773920 (Version 2)
Quarter: 2019Q3

REPORT INFORMATION
  Report Type: Report from Study
  Country: US (occurrence: US)
  Receive Date: 20190904
  Receipt Date: 20190925
  Transmission Date: 20191005
  Serious: Yes (Hospitalization)
  Sender: FDA-Public Use
  Company Number: US-EXELIXIS-XL18419023491

PATIENT
  Age: 89 Year
  Sex: Female
  Weight: 57 kg

DRUGS (13)
  1. CEFDINIR. [Concomitant]
     Active Substance: CEFDINIR
  2. ZITHROMAX [Concomitant]
     Active Substance: AZITHROMYCIN DIHYDRATE
  3. TENORMIN [Concomitant]
     Active Substance: ATENOLOL
  4. XALATAN [Concomitant]
     Active Substance: LATANOPROST
  5. XL184 [Suspect]
     Active Substance: CABOZANTINIB
     Indication: NON-SMALL CELL LUNG CANCER
     Dosage: 40 MG, QD
     Route: 048
     Dates: start: 20190816
  6. ATIVAN [Concomitant]
     Active Substance: LORAZEPAM
  7. TRAVATAN [Concomitant]
     Active Substance: TRAVOPROST
  8. LOVENOX [Concomitant]
     Active Substance: ENOXAPARIN SODIUM
  9. ZOFRAN [Concomitant]
     Active Substance: ONDANSETRON HYDROCHLORIDE
  10. CALCIUM [Concomitant]
     Active Substance: CALCIUM
  11. TYLENOL [Concomitant]
     Active Substance: ACETAMINOPHEN
  12. ROCEPHIN [Concomitant]
     Active Substance: CEFTRIAXONE SODIUM
  13. ATEZOLIZUMAB. [Suspect]
     Active Substance: ATEZOLIZUMAB
     Indication: NON-SMALL CELL LUNG CANCER
     Dosage: 1200 MG, Q3WEEKS
     Route: 042
     Dates: start: 20190816

REACTIONS (2)
  - Nausea [Unknown]
  - Pyrexia [Recovered/Resolved with Sequelae]

NARRATIVE: CASE EVENT DATE: 20190823
